FAERS Safety Report 22034406 (Version 2)
Quarter: 2024Q4

REPORT INFORMATION
  Report Type: Spontaneous
  Country: US (occurrence: US)
  Receive Date: 20230224
  Receipt Date: 20241118
  Transmission Date: 20250114
  Serious: No
  Sender: SANOFI AVENTIS
  Company Number: US-SA-SAC20230224000505

PATIENT
  Age: 55 Year
  Sex: Female
  Weight: 82.73 kg

DRUGS (5)
  1. DUPIXENT [Suspect]
     Active Substance: DUPILUMAB
     Dosage: 300 MG, QOW
     Route: 058
  2. WEGOVY [Concomitant]
     Active Substance: SEMAGLUTIDE
  3. CLOPIDOGREL [Concomitant]
     Active Substance: CLOPIDOGREL BISULFATE
  4. IBUPROFEN [Concomitant]
     Active Substance: IBUPROFEN
  5. ELIQUIS [Concomitant]
     Active Substance: APIXABAN

REACTIONS (2)
  - Surgery [Unknown]
  - Therapeutic response decreased [Unknown]

NARRATIVE: CASE EVENT DATE: 20241104
